FAERS Safety Report 5353173-0 (Version None)
Quarter: 2007Q2

REPORT INFORMATION
  Report Type: 
  Country: None (occurrence: None)
  Receive Date: 20070608
  Receipt Date: 20070529
  Transmission Date: 20071010
  Serious: Yes (Other)
  Sender: FDA-Public Use
  Company Number: GXKR2007US04680

PATIENT
  Sex: Male

DRUGS (7)
  1. PREDNISONE [Suspect]
     Indication: LYMPHOCYTIC LEUKAEMIA
  2. VINCRISTINE [Suspect]
     Indication: LYMPHOCYTIC LEUKAEMIA
  3. METHOTREXATE [Suspect]
     Indication: LYMPHOCYTIC LEUKAEMIA
  4. L-ASPARAGINASE (ASPARAGINASE) [Concomitant]
  5. MERCAPTOPURINE [Concomitant]
  6. DAUNORUBICIN HCL [Concomitant]
  7. CYTOXAN [Concomitant]

REACTIONS (2)
  - DYSPLASTIC NAEVUS SYNDROME [None]
  - MALIGNANT MELANOMA IN SITU [None]
